FAERS Safety Report 9261496 (Version 1)
Quarter: 2013Q2

REPORT INFORMATION
  Report Type: Spontaneous
  Country: US (occurrence: US)
  Receive Date: 20130429
  Receipt Date: 20130429
  Transmission Date: 20140414
  Serious: Yes (Other)
  Sender: FDA-Public Use
  Company Number: US-BAYER-2013-052032

PATIENT
  Age: 32 Year
  Sex: Female

DRUGS (10)
  1. YASMIN [Suspect]
  2. PREVACID [Concomitant]
     Dosage: 30 MG, UNK
  3. METFORMIN [Concomitant]
     Dosage: 500 MG, UNK
  4. HYDROCHLOROTHIAZIDE [Concomitant]
     Dosage: 25 MG, UNK
  5. HYDROCODONE BITARTRATE W/IBUPROFEN [Concomitant]
     Dosage: 7.5-200 MG TABLETS; 20 DISPENSED
  6. ALBUTEROL [Concomitant]
     Dosage: 90 ?G, UNK
     Route: 045
  7. ZITHROMAX [Concomitant]
  8. PREDNISONE [Concomitant]
     Dosage: 20 MG, UNK
  9. AMOXICILLIN [Concomitant]
     Dosage: 500 MG CAPSULES; TAKE ONE THREE TIMES DAILY; 30 DISPENSED
     Route: 048
  10. VICODIN [Concomitant]

REACTIONS (1)
  - Deep vein thrombosis [None]
